FAERS Safety Report 9138255 (Version 2)
Quarter: 2013Q3

REPORT INFORMATION
  Report Type: Spontaneous
  Country: CO (occurrence: CO)
  Receive Date: 20130305
  Receipt Date: 20130712
  Transmission Date: 20140515
  Serious: Yes (Hospitalization, Other)
  Sender: FDA-Public Use
  Company Number: CO-AMGEN-COLSP2013014795

PATIENT
  Age: 42 Year
  Sex: Female

DRUGS (11)
  1. ENBREL [Suspect]
     Indication: RHEUMATOID ARTHRITIS
     Dosage: 50 MG, WEEKLY
     Route: 058
     Dates: start: 2007, end: 20130618
  2. METHOTREXATE [Concomitant]
     Indication: RHEUMATOID ARTHRITIS
     Dosage: 3 TABLETS OF 2.5MG ON SATURDAY AND 3 TABLETS OF 2.5MG ON SUNDAY, WEEKLY
     Route: 048
     Dates: start: 2007
  3. PREDNISOLON                        /00016201/ [Concomitant]
     Indication: RHEUMATOID ARTHRITIS
     Dosage: 5 MG, 1X/DAY AT NIGHT
     Route: 048
     Dates: start: 1991
  4. OMEPRAZOL                          /00661201/ [Concomitant]
     Indication: GASTRITIS
     Dosage: 20 MG, 2X/DAY (EACH 12 HOURS IN FASTING)
     Route: 048
     Dates: start: 2009
  5. FOLIC ACID [Concomitant]
     Indication: ANAEMIA
     Dosage: 1 MG, 1X/DAY
     Route: 048
     Dates: start: 2008
  6. FOLIC ACID [Concomitant]
     Indication: OSTEOPOROSIS
     Dosage: UNK
     Dates: start: 2007
  7. VERAPAMIL [Concomitant]
     Indication: HYPERTENSION
     Dosage: 80 MG, QD
     Route: 048
     Dates: start: 2010
  8. ALENDRONIC ACID [Concomitant]
     Indication: OSTEOPOROSIS
     Dosage: 75 MG, WEEKLY ON THURSDAY
     Route: 048
     Dates: start: 2003
  9. BUSCAPINA COMPOSITUM               /00005101/ [Concomitant]
     Indication: RHEUMATOID ARTHRITIS
     Dosage: 250 MG, AS NEEDED
     Route: 048
     Dates: start: 1996
  10. BUSCAPINA COMPOSITUM               /00005101/ [Concomitant]
     Indication: NEPHROLITHIASIS
  11. BUSCAPINA COMPOSITUM               /00005101/ [Concomitant]
     Indication: ENDOMETRIOSIS

REACTIONS (11)
  - Dengue fever [Recovered/Resolved]
  - Cough [Recovered/Resolved]
  - Pain in extremity [Not Recovered/Not Resolved]
  - Headache [Not Recovered/Not Resolved]
  - Discomfort [Not Recovered/Not Resolved]
  - Migraine [Not Recovered/Not Resolved]
  - Hiatus hernia [Not Recovered/Not Resolved]
  - Infection [Recovered/Resolved]
  - Onychomycosis [Not Recovered/Not Resolved]
  - Influenza [Not Recovered/Not Resolved]
  - Viral infection [Recovering/Resolving]
